FAERS Safety Report 11809946 (Version 2)
Quarter: 2015Q4

REPORT INFORMATION
  Report Type: Spontaneous
  Country: RU (occurrence: RU)
  Receive Date: 20151208
  Receipt Date: 20151210
  Transmission Date: 20160305
  Serious: Yes (Hospitalization, Other)
  Sender: FDA-Public Use
  Company Number: PHHY2015RU159821

PATIENT
  Sex: Female

DRUGS (1)
  1. ILARIS [Suspect]
     Active Substance: CANAKINUMAB
     Indication: PSORIATIC ARTHROPATHY
     Dosage: UNK, ONCE/SINGLE
     Route: 065
     Dates: start: 201503

REACTIONS (2)
  - Infection [Unknown]
  - Otitis media [Recovered/Resolved]

NARRATIVE: CASE EVENT DATE: 201503
